FAERS Safety Report 11983368 (Version 2)
Quarter: 2016Q1

REPORT INFORMATION
  Report Type: Spontaneous
  Country: IN (occurrence: IN)
  Receive Date: 20160201
  Receipt Date: 20160215
  Transmission Date: 20160526
  Serious: Yes (Death, Hospitalization, Other)
  Sender: FDA-Public Use
  Company Number: IN-PFIZER INC-2016049906

PATIENT
  Age: 66 Year
  Sex: Male

DRUGS (1)
  1. SUTENT [Suspect]
     Active Substance: SUNITINIB MALATE
     Indication: METASTATIC RENAL CELL CARCINOMA
     Dosage: 50 MG, 1X/DAY
     Route: 048
     Dates: start: 20141029, end: 201509

REACTIONS (8)
  - Cellulitis [Unknown]
  - Obstructive airways disorder [Unknown]
  - Hypersensitivity [Unknown]
  - Disease progression [Fatal]
  - Metastatic renal cell carcinoma [Fatal]
  - Loss of consciousness [Unknown]
  - Pyrexia [Unknown]
  - Peripheral swelling [Unknown]

NARRATIVE: CASE EVENT DATE: 201509
